FAERS Safety Report 9596616 (Version 3)
Quarter: 2014Q3

REPORT INFORMATION
  Report Type: Spontaneous
  Country: US (occurrence: US)
  Receive Date: 20131004
  Receipt Date: 20140716
  Transmission Date: 20150326
  Serious: No
  Sender: FDA-Public Use
  Company Number: US-BAYER-2013-119970

PATIENT
  Age: 36 Year
  Sex: Female
  Weight: 76.19 kg

DRUGS (1)
  1. MIRENA [Suspect]
     Active Substance: LEVONORGESTREL
     Indication: CONTRACEPTION
     Dosage: 20 MCG/24HR, CONT
     Route: 015
     Dates: start: 20120606, end: 20130914

REACTIONS (3)
  - Pregnancy with contraceptive device [Recovered/Resolved]
  - Blighted ovum [None]
  - Drug ineffective [None]

NARRATIVE: CASE EVENT DATE: 201308
